FAERS Safety Report 19963570 (Version 1)
Quarter: 2021Q4

REPORT INFORMATION
  Report Type: Spontaneous
  Country: US (occurrence: US)
  Receive Date: 20211018
  Receipt Date: 20211018
  Transmission Date: 20220303
  Serious: Yes (Other)
  Sender: FDA-Public Use
  Company Number: US-JNJFOC-20211015242

PATIENT
  Age: 59 Year
  Sex: Female

DRUGS (3)
  1. SPRAVATO [Suspect]
     Active Substance: ESKETAMINE
     Indication: Depression
     Dates: start: 202109
  2. SPRAVATO [Suspect]
     Active Substance: ESKETAMINE
     Indication: Generalised anxiety disorder
     Dates: start: 202109
  3. NALTREXONE [Concomitant]
     Active Substance: NALTREXONE
     Indication: Alcoholism

REACTIONS (6)
  - Suicidal ideation [Unknown]
  - Depression suicidal [Unknown]
  - Feeling of despair [Unknown]
  - Anhedonia [Unknown]
  - Asthenia [Unknown]
  - Negative thoughts [Unknown]
